FAERS Safety Report 4310817-X (Version None)
Quarter: 2004Q1

REPORT INFORMATION
  Report Type: 
  Country: None (occurrence: None)
  Receive Date: 20040302
  Receipt Date: 20040218
  Transmission Date: 20041129
  Serious: Yes (Hospitalization, Disabling)
  Sender: FDA-Public Use
  Company Number: 2000UW00222

PATIENT
  Age: 66 Year
  Sex: Female

DRUGS (2)
  1. AMITRIPTYLINE HYDROCHLORIDE [Suspect]
     Indication: DEPRESSION
     Dosage: 25 MG TID PO
     Route: 048
     Dates: end: 19971128
  2. SULPIRIDE [Suspect]
     Indication: DEPRESSION
     Dosage: 300 MG QD PO
     Route: 048
     Dates: end: 19971128

REACTIONS (4)
  - DRUG INEFFECTIVE [None]
  - DYSTONIA [None]
  - JOINT DISLOCATION [None]
  - PROCEDURAL COMPLICATION [None]
